FAERS Safety Report 9016533 (Version 1)
Quarter: 2013Q1

REPORT INFORMATION
  Report Type: Spontaneous
  Country: US (occurrence: US)
  Receive Date: 20130116
  Receipt Date: 20130116
  Transmission Date: 20140127
  Serious: Yes (Hospitalization, Other)
  Sender: FDA-Public Use
  Company Number: US-009507513-1301USA003476

PATIENT
  Sex: Female

DRUGS (9)
  1. SINGULAIR [Suspect]
     Dosage: 10 MG, UNK
  2. MIRAPEX [Suspect]
     Dosage: 0.75 MG, (0.25 MG AND 0.5 MG)
  3. AMBIEN [Suspect]
     Dosage: 5 MG, QD
  4. ADDERALL TABLETS [Suspect]
     Dosage: 10 MG, BID
  5. LYRICA [Suspect]
     Dosage: 100 MG, TID
  6. LEXAPRO [Suspect]
     Dosage: 20 MG, QD
  7. NITROFURANTOIN [Suspect]
     Dosage: 100 MG, BID
  8. LORATADINE [Suspect]
     Dosage: 10 MG, UNK
  9. GILENYA [Suspect]
     Dosage: 0.5 MG, QD
     Route: 048

REACTIONS (6)
  - Urinary tract infection [Unknown]
  - Migraine [Unknown]
  - Infection [Unknown]
  - Fall [Unknown]
  - Dehydration [Unknown]
  - Balance disorder [Unknown]
